FAERS Safety Report 7509276-5 (Version None)
Quarter: 2011Q2

REPORT INFORMATION
  Report Type: 
  Country: None (occurrence: None)
  Receive Date: 20110527
  Receipt Date: 20110519
  Transmission Date: 20111010
  Serious: Yes (Hospitalization)
  Sender: FDA-Public Use
  Company Number: JP-AMGEN-JPNSP2011007661

PATIENT
  Age: 77 Year
  Sex: Female

DRUGS (3)
  1. RHEUMATREX [Concomitant]
     Dosage: UNK
     Dates: end: 20110203
  2. HIRUDOID                           /00723701/ [Concomitant]
     Dosage: UNK
  3. ENBREL [Suspect]
     Indication: PRODUCT USED FOR UNKNOWN INDICATION
     Dosage: 25 MG, WEEKLY
     Route: 058
     Dates: start: 20100901, end: 20110203

REACTIONS (2)
  - SPINAL FRACTURE [None]
  - ASTEATOSIS [None]
